FAERS Safety Report 6428618-5 (Version None)
Quarter: 2009Q4

REPORT INFORMATION
  Report Type: 
  Country: None (occurrence: None)
  Receive Date: 20091105
  Receipt Date: 20091103
  Transmission Date: 20100525
  Serious: Yes (Other)
  Sender: FDA-Public Use
  Company Number: US-PFIZER INC-2006082145

PATIENT
  Sex: Female

DRUGS (2)
  1. PROVERA [Suspect]
     Indication: HORMONE REPLACEMENT THERAPY
     Route: 048
  2. COMBIPATCH [Suspect]
     Indication: HORMONE REPLACEMENT THERAPY
     Dosage: 250 UG, UNK
     Route: 062
     Dates: start: 20000601, end: 20020619

REACTIONS (5)
  - BREAST CANCER FEMALE [None]
  - CHEMOTHERAPY [None]
  - MULTIPLE INJURIES [None]
  - RADIOTHERAPY [None]
  - SURGERY [None]
